FAERS Safety Report 16706381 (Version 2)
Quarter: 2019Q3

REPORT INFORMATION
  Report Type: Spontaneous
  Country: GB (occurrence: GB)
  Receive Date: 20190815
  Receipt Date: 20190902
  Transmission Date: 20191004
  Serious: Yes (Hospitalization, Other)
  Sender: FDA-Public Use
  Company Number: GB-PFIZER INC-2019346560

PATIENT
  Age: 50 Year
  Sex: Male

DRUGS (10)
  1. LAMOTRIGINE. [Concomitant]
     Active Substance: LAMOTRIGINE
     Dosage: 100 MG, 1X/DAY
  2. VOLTAROL [Suspect]
     Active Substance: DICLOFENAC SODIUM
     Indication: BACK PAIN
     Dosage: UNK, AS NEEDED
  3. ASACOL [Concomitant]
     Active Substance: MESALAMINE
     Dosage: 4800 MG, 1X/DAY
  4. CANDESARTAN. [Concomitant]
     Active Substance: CANDESARTAN
     Dosage: 8 MG, 1X/DAY
  5. IBUPROFEN. [Suspect]
     Active Substance: IBUPROFEN
     Indication: PAIN
     Dosage: 800 MG, THREE TO FOUR TIMES A DAY FOR 3 WEEKS
  6. BUPRENORPHINE. [Concomitant]
     Active Substance: BUPRENORPHINE
     Dosage: 2 DF, WEEKLY (20MCG PER HOUR. REMOVE OLD PATCH BEFORE APPLYING NEW PATCH)
     Route: 062
  7. PARACETAMOL [Concomitant]
     Active Substance: ACETAMINOPHEN
     Dosage: 500 MG, AS NEEDED (AS NECESSARY UP TO FOUR TIMES DAILY)
  8. CARVEDILOL. [Concomitant]
     Active Substance: CARVEDILOL
     Dosage: 6.25 MG, 1X/DAY
  9. DIAZEPAM. [Concomitant]
     Active Substance: DIAZEPAM
     Dosage: 6 MG, 1X/DAY
  10. MOMETASONE [Concomitant]
     Active Substance: MOMETASONE
     Dosage: 200 UG, 1X/DAY (TWO SPRAYS TO BE USED IN EACH NOSTRIL)
     Route: 045

REACTIONS (5)
  - Duodenal ulcer [Unknown]
  - Upper gastrointestinal haemorrhage [Recovered/Resolved]
  - Dizziness [Unknown]
  - Melaena [Unknown]
  - Haematemesis [Unknown]
